FAERS Safety Report 18215468 (Version 2)
Quarter: 2020Q3

REPORT INFORMATION
  Report Type: Spontaneous
  Country: CN (occurrence: CN)
  Receive Date: 20200831
  Receipt Date: 20200908
  Transmission Date: 20201103
  Serious: Yes (Other)
  Sender: FDA-Public Use
  Company Number: CN-SA-2020SA228704

PATIENT

DRUGS (10)
  1. STILNOX [Suspect]
     Active Substance: ZOLPIDEM TARTRATE
     Indication: MALAISE
     Dosage: 1 DF, QD
     Route: 048
  2. STILNOX [Suspect]
     Active Substance: ZOLPIDEM TARTRATE
     Dosage: 2 DF, QD
     Route: 048
  3. PANADOL [Suspect]
     Active Substance: ACETAMINOPHEN
     Dosage: INTERMITTENT USE
     Route: 048
  4. STILNOX [Suspect]
     Active Substance: ZOLPIDEM TARTRATE
     Dosage: 0.5 DF, QD
     Dates: start: 202006
  5. STILNOX [Suspect]
     Active Substance: ZOLPIDEM TARTRATE
     Dosage: INTERMITTENT USE
     Route: 048
  6. STILNOX [Suspect]
     Active Substance: ZOLPIDEM TARTRATE
     Dosage: 1 DF, QD
     Route: 048
  7. STILNOX [Suspect]
     Active Substance: ZOLPIDEM TARTRATE
     Indication: HEADACHE
     Dosage: 0.5 DF, QD
     Route: 048
  8. PANADOL [Suspect]
     Active Substance: ACETAMINOPHEN
     Indication: MIGRAINE
     Dosage: TOOK 1?2 TABLETS AT A TIME, NO MORE THAN 4 TABLETS A DAY
     Route: 048
     Dates: start: 2003
  9. STILNOX [Suspect]
     Active Substance: ZOLPIDEM TARTRATE
     Indication: INSOMNIA
     Dosage: 0.33 DF, QD
     Route: 048
     Dates: start: 200305
  10. STILNOX [Suspect]
     Active Substance: ZOLPIDEM TARTRATE
     Dosage: 1.5 DF, QD
     Route: 048

REACTIONS (3)
  - Exposure during pregnancy [Unknown]
  - Insomnia [Recovering/Resolving]
  - Myringitis [Recovered/Resolved]

NARRATIVE: CASE EVENT DATE: 201901
